FAERS Safety Report 24022918 (Version 3)
Quarter: 2024Q3

REPORT INFORMATION
  Report Type: Spontaneous
  Country: IN (occurrence: IN)
  Receive Date: 20240627
  Receipt Date: 20240710
  Transmission Date: 20241017
  Serious: No
  Sender: ROCHE
  Company Number: IN-ROCHE-3532181

PATIENT
  Age: 76 Year
  Sex: Female

DRUGS (3)
  1. VABYSMO [Suspect]
     Active Substance: FARICIMAB\FARICIMAB-SVOA
     Indication: Neovascular age-related macular degeneration
     Dosage: ONGOING: YES;  RIGHT EYE FIRST INFUSION
     Route: 050
     Dates: start: 20240205
  2. VABYSMO [Suspect]
     Active Substance: FARICIMAB\FARICIMAB-SVOA
     Dosage: ONGOING: YES;  RIGHT EYE SECOND INFUSION
     Route: 050
     Dates: start: 20240302
  3. VABYSMO [Suspect]
     Active Substance: FARICIMAB\FARICIMAB-SVOA
     Dosage: ONGOING: YES;  THIS IS THE FIRST INFUSION FOR LEFT EYE.
     Route: 050
     Dates: start: 20240214

REACTIONS (2)
  - Off label use [Unknown]
  - No adverse event [Unknown]
